FAERS Safety Report 17245716 (Version 1)
Quarter: 2020Q1

REPORT INFORMATION
  Report Type: Spontaneous
  Country: IT (occurrence: IT)
  Receive Date: 20200108
  Receipt Date: 20200108
  Transmission Date: 20200409
  Serious: Yes (Other)
  Sender: FDA-Public Use
  Company Number: IT-SA-2020SA000671

PATIENT
  Age: 85 Year
  Sex: Female

DRUGS (4)
  1. GLICLAZIDE [Interacting]
     Active Substance: GLICLAZIDE
     Indication: DIABETES MELLITUS
     Dosage: 1 DF, QD
     Route: 048
  2. PAROXETINE. [Concomitant]
     Active Substance: PAROXETINE
     Dosage: UNK UNK, UNK
     Route: 065
  3. CLONAZEPAM. [Concomitant]
     Active Substance: CLONAZEPAM
     Dosage: UNK UNK, UNK
  4. INSULIN GLARGINE [Suspect]
     Active Substance: INSULIN GLARGINE
     Indication: DIABETES MELLITUS
     Dosage: 1 DF, QD
     Route: 058

REACTIONS (4)
  - Dizziness [Recovering/Resolving]
  - Hypoglycaemia [Recovering/Resolving]
  - Drug interaction [Unknown]
  - Hyperinsulinaemic hypoglycaemia [Recovering/Resolving]

NARRATIVE: CASE EVENT DATE: 20191123
